FAERS Safety Report 11653257 (Version 5)
Quarter: 2015Q4

REPORT INFORMATION
  Report Type: Spontaneous
  Country: US (occurrence: US)
  Receive Date: 20151022
  Receipt Date: 20151221
  Transmission Date: 20160304
  Serious: Yes (Hospitalization)
  Sender: FDA-Public Use
  Company Number: US-VERTEX PHARMACEUTICALS-2015-004630

PATIENT
  Age: 32 Year
  Sex: Female

DRUGS (5)
  1. CAYSTON [Concomitant]
     Active Substance: AZTREONAM
  2. PULMOZYME [Concomitant]
     Active Substance: DORNASE ALFA
  3. KALYDECO [Suspect]
     Active Substance: IVACAFTOR
     Dosage: 150 MG, BID
     Route: 048
     Dates: end: 20150825
  4. TOBRAMYCIN. [Concomitant]
     Active Substance: TOBRAMYCIN
  5. KALYDECO [Suspect]
     Active Substance: IVACAFTOR
     Indication: CYSTIC FIBROSIS
     Dosage: 150 MG, TWICE WEEKLY
     Route: 048
     Dates: start: 2015

REACTIONS (2)
  - Cystic fibrosis [Unknown]
  - Laryngitis [Unknown]

NARRATIVE: CASE EVENT DATE: 20151011
